FAERS Safety Report 13111253 (Version 2)
Quarter: 2017Q1

REPORT INFORMATION
  Report Type: Report from Study
  Country: ES (occurrence: ES)
  Receive Date: 20170112
  Receipt Date: 20170117
  Transmission Date: 20170428
  Serious: Yes (Hospitalization)
  Sender: FDA-Public Use
  Company Number: ES-PFIZER INC-2017008909

PATIENT
  Age: 61 Year
  Sex: Female

DRUGS (5)
  1. PLENUR /00033702/ [Concomitant]
     Active Substance: LITHIUM CARBONATE
     Indication: BIPOLAR DISORDER
     Dosage: 1 DF, 2X/DAY
     Route: 048
     Dates: start: 20040923
  2. ORFIDAL [Suspect]
     Active Substance: LORAZEPAM
     Indication: SUICIDE ATTEMPT
     Dosage: 15 DF OF 1 MG (TOTAL DOSE OF 15 MG)
     Route: 048
     Dates: start: 20150827, end: 20150827
  3. TRANXILIUM [Suspect]
     Active Substance: CLORAZEPATE DIPOTASSIUM
     Indication: SUICIDE ATTEMPT
     Dosage: 12 CAPSULES OF 10 MG (120 MG TOTAL DOSE)
     Route: 048
     Dates: start: 20150827, end: 20150827
  4. ANEXATE [Suspect]
     Active Substance: FLUMAZENIL
     Indication: TOXICITY TO VARIOUS AGENTS
     Dosage: UNK, DAILY
     Route: 042
     Dates: start: 20150827, end: 20150831
  5. FLUOXETINE [Concomitant]
     Active Substance: FLUOXETINE HYDROCHLORIDE
     Indication: DEPRESSION
     Dosage: UNK, 1X/DAY
     Route: 048
     Dates: start: 20140430

REACTIONS (1)
  - Pancreatitis acute [Recovered/Resolved]

NARRATIVE: CASE EVENT DATE: 20150828
